FAERS Safety Report 5010907-2 (Version None)
Quarter: 2006Q2

REPORT INFORMATION
  Report Type: 
  Country: None (occurrence: None)
  Receive Date: 20060523
  Receipt Date: 20060512
  Transmission Date: 20061013
  Serious: Yes (Other)
  Sender: FDA-Public Use
  Company Number: HQWYE720901DEC04

PATIENT
  Age: 56 Year
  Sex: Female
  Weight: 72.7 kg

DRUGS (11)
  1. RAPAMUNE [Suspect]
     Indication: PROPHYLAXIS AGAINST TRANSPLANT REJECTION
     Dosage: SEE IMAGE
     Route: 048
     Dates: start: 20040924, end: 20041024
  2. RAPAMUNE [Suspect]
     Indication: PROPHYLAXIS AGAINST TRANSPLANT REJECTION
     Dosage: SEE IMAGE
     Route: 048
     Dates: start: 20041025
  3. ACTIGALL [Concomitant]
  4. PREVACID [Concomitant]
  5. SYNTHROID [Concomitant]
  6. BACTRIM [Concomitant]
  7. BENADRYL [Concomitant]
  8. NORVASC [Concomitant]
  9. PREDNISONE TAB [Concomitant]
  10. PREDNISONE TAB [Concomitant]
  11. PREDNISONE TAB [Concomitant]

REACTIONS (2)
  - LIVER TRANSPLANT REJECTION [None]
  - PRURITUS [None]
